FAERS Safety Report 4696835-0 (Version None)
Quarter: 2005Q2

REPORT INFORMATION
  Report Type: 
  Country: None (occurrence: None)
  Receive Date: 20050622
  Receipt Date: 20050608
  Transmission Date: 20051028
  Serious: Yes (Other)
  Sender: FDA-Public Use
  Company Number: FR-JNJFOC-20050304424

PATIENT
  Age: 52 Year
  Sex: Female

DRUGS (5)
  1. REMICADE [Suspect]
     Indication: RHEUMATOID ARTHRITIS
     Route: 042
  2. EFFEXOR [Concomitant]
  3. METHOTREXATE [Concomitant]
  4. ALDACTAZINE [Concomitant]
  5. ALDACTAZINE [Concomitant]

REACTIONS (1)
  - GAMMOPATHY [None]
